FAERS Safety Report 7023502-0 (Version None)
Quarter: 2010Q3

REPORT INFORMATION
  Report Type: 
  Country: None (occurrence: None)
  Receive Date: 20100929
  Receipt Date: 20100929
  Transmission Date: 20110219
  Serious: Yes (Other)
  Sender: FDA-Public Use
  Company Number: None

PATIENT
  Age: 69 Year
  Sex: Male
  Weight: 115.2136 kg

DRUGS (2)
  1. BYETTA [Suspect]
     Indication: DIABETES MELLITUS
     Dosage: 10 MCG TWICE A DAY SQ
     Route: 058
     Dates: start: 20090301, end: 20100530
  2. BYETTA [Suspect]
     Indication: OBESITY
     Dosage: 10 MCG TWICE A DAY SQ
     Route: 058
     Dates: start: 20090301, end: 20100530

REACTIONS (3)
  - ABDOMINAL PAIN UPPER [None]
  - ADENOCARCINOMA PANCREAS [None]
  - WEIGHT DECREASED [None]
